FAERS Safety Report 12308833 (Version 1)
Quarter: 2016Q2

REPORT INFORMATION
  Report Type: Spontaneous
  Country: US (occurrence: None)
  Receive Date: 20160426
  Receipt Date: 20160426
  Transmission Date: 20160815
  Serious: Yes (Disabling)
  Sender: FDA-Public Use
  Company Number: None

PATIENT
  Age: 63 Year
  Sex: Male
  Weight: 90.72 kg

DRUGS (10)
  1. ELIQUIS [Concomitant]
     Active Substance: APIXABAN
  2. VITAMIN B12 [Concomitant]
     Active Substance: CYANOCOBALAMIN
  3. FLECAINIDE [Concomitant]
     Active Substance: FLECAINIDE
  4. TIAZAC [Concomitant]
     Active Substance: DILTIAZEM HYDROCHLORIDE
  5. ZOLOFT [Concomitant]
     Active Substance: SERTRALINE HYDROCHLORIDE
  6. LOSEC [Concomitant]
     Active Substance: OMEPRAZOLE
  7. CRESTOR [Concomitant]
     Active Substance: ROSUVASTATIN CALCIUM
  8. GLUCOSAMINE [Concomitant]
     Active Substance: GLUCOSAMINE
  9. PRADAXA [Suspect]
     Active Substance: DABIGATRAN ETEXILATE MESYLATE
     Indication: ATRIAL FIBRILLATION
     Dosage: 2640 CAPSULE(S) TWICE A DAU TAKEN BY MOUTH
     Route: 048
     Dates: start: 20120814, end: 20160420
  10. MULTI VITAMIN [Concomitant]
     Active Substance: VITAMINS

REACTIONS (4)
  - Abdominal pain upper [None]
  - Faeces discoloured [None]
  - Fatigue [None]
  - Dyspnoea exertional [None]

NARRATIVE: CASE EVENT DATE: 20151201
